FAERS Safety Report 7034527-3 (Version None)
Quarter: 2010Q4

REPORT INFORMATION
  Report Type: 
  Country: None (occurrence: None)
  Receive Date: 20101008
  Receipt Date: 20100929
  Transmission Date: 20110411
  Serious: Yes (Hospitalization, Other)
  Sender: FDA-Public Use
  Company Number: MX-SHIRE-SPV1-2010-00531

PATIENT
  Age: 9 Year
  Sex: Male

DRUGS (4)
  1. ELAPRASE [Suspect]
     Indication: MUCOPOLYSACCHARIDOSIS II
     Dosage: .5 MG/KG, UNK
     Route: 041
     Dates: start: 20100209
  2. PHENYTOIN [Concomitant]
     Indication: CONVULSION
     Dosage: 15 MG/KG, UNK
  3. PHENYTOIN [Concomitant]
     Dosage: 8 MG/KG, UNK
  4. OXCARBAZEPINE [Concomitant]
     Indication: CONVULSION

REACTIONS (5)
  - CATHETERISATION VENOUS [None]
  - CONVULSION [None]
  - INCREASED BRONCHIAL SECRETION [None]
  - INFUSION RELATED REACTION [None]
  - TACHYCARDIA [None]
